FAERS Safety Report 10176651 (Version 1)
Quarter: 2014Q2

REPORT INFORMATION
  Report Type: Spontaneous
  Country: GB (occurrence: GB)
  Receive Date: 20140516
  Receipt Date: 20140516
  Transmission Date: 20141212
  Serious: Yes (Other)
  Sender: FDA-Public Use
  Company Number: GB-BAYER-2014-068197

PATIENT
  Age: 74 Year
  Sex: Male

DRUGS (4)
  1. ACETYLSALICYLIC ACID({=100 MG) [Suspect]
     Indication: ANTIPLATELET THERAPY
     Dosage: UNK
  2. ACETYLSALICYLIC ACID({=100 MG) [Suspect]
     Indication: ANTIPLATELET THERAPY
     Dosage: UNK
  3. CLOPIDOGREL [Suspect]
     Indication: ANTIPLATELET THERAPY
     Dosage: UNK
  4. CLOPIDOGREL [Suspect]
     Indication: ANTIPLATELET THERAPY
     Dosage: UNK

REACTIONS (5)
  - Haematuria [Recovered/Resolved]
  - Haemoglobin decreased [Recovered/Resolved]
  - Renal failure [Recovered/Resolved]
  - Haemodynamic instability [None]
  - Hypotension [None]
